FAERS Safety Report 5011882-7 (Version None)
Quarter: 2006Q2

REPORT INFORMATION
  Report Type: 
  Country: None (occurrence: None)
  Receive Date: 20060526
  Receipt Date: 20051124
  Transmission Date: 20061013
  Serious: Yes (Other)
  Sender: FDA-Public Use
  Company Number: FR-SANOFI-SYNTHELABO-A02200503088

PATIENT
  Sex: Female
  Weight: 44 kg

DRUGS (4)
  1. ELOXATIN [Suspect]
     Indication: COLON CANCER METASTATIC
     Route: 042
     Dates: start: 20051121, end: 20051121
  2. MORPHINE [Concomitant]
  3. CALCIUM LEVOFOLINATE [Concomitant]
     Route: 042
     Dates: start: 20050101, end: 20050101
  4. FLUOROURACIL [Concomitant]
     Route: 042
     Dates: start: 20050101, end: 20050101

REACTIONS (4)
  - COLON CANCER [None]
  - EPILEPSY [None]
  - MALIGNANT NEOPLASM PROGRESSION [None]
  - MENINGITIS [None]
